FAERS Safety Report 9854687 (Version 1)
Quarter: 2014Q1

REPORT INFORMATION
  Report Type: Spontaneous
  Country: CH (occurrence: CH)
  Receive Date: 20140130
  Receipt Date: 20140130
  Transmission Date: 20141002
  Serious: Yes (Other)
  Sender: FDA-Public Use
  Company Number: CH-BRISTOL-MYERS SQUIBB COMPANY-20059895

PATIENT
  Age: 57 Year
  Sex: Male

DRUGS (1)
  1. ABILIFY TABS 5 MG [Suspect]
     Indication: SCHIZOPHRENIA
     Dosage: DOSE: 10 MG AT FIRST, 5 MG FOR 3 YEARS

REACTIONS (1)
  - Oesophageal carcinoma [Unknown]
